FAERS Safety Report 17828488 (Version 3)
Quarter: 2020Q4

REPORT INFORMATION
  Report Type: Spontaneous
  Country: US (occurrence: US)
  Receive Date: 20200527
  Receipt Date: 20201120
  Transmission Date: 20210113
  Serious: No
  Sender: FDA-Public Use
  Company Number: US-PFIZER INC-2020207567

PATIENT
  Age: 56 Year
  Sex: Female
  Weight: 69.4 kg

DRUGS (3)
  1. LYRICA [Suspect]
     Active Substance: PREGABALIN
     Indication: FIBROMYALGIA
     Dosage: 75 MG, 3X/DAY (TAKE 1 CAPSULE BY ORAL ROUTE 3 TIMES EVERY DAY/ 3 PO QD (EVERY DAY))
     Route: 048
  2. LYRICA [Suspect]
     Active Substance: PREGABALIN
     Dosage: 225 MG, 2X/DAY (MORNING DOSE IS 225 MG IN 3 PILLS AT 75 MG EACH. NIGHTLY DOSE IS 225 MG IN A SINGLE
  3. LYRICA [Suspect]
     Active Substance: PREGABALIN
     Indication: RHEUMATOID ARTHRITIS
     Dosage: 225 MG, 1X/DAY (TAKE 1 CAPSULE BY ORAL ROUTE EVERY BEDTIME/ 1 PO QPM (EVERY AFTERNOON OR EVENING))
     Route: 048

REACTIONS (1)
  - Vitamin D decreased [Not Recovered/Not Resolved]

NARRATIVE: CASE EVENT DATE: 20200505
